FAERS Safety Report 24408905 (Version 3)
Quarter: 2025Q1

REPORT INFORMATION
  Report Type: Report from Study
  Country: US (occurrence: US)
  Receive Date: 20241007
  Receipt Date: 20250318
  Transmission Date: 20250409
  Serious: Yes (Hospitalization, Other)
  Sender: ABBVIE
  Company Number: US-ABBVIE-5948004

PATIENT
  Age: 55 Year
  Sex: Male

DRUGS (1)
  1. SKYRIZI [Suspect]
     Active Substance: RISANKIZUMAB-RZAA
     Indication: Psoriasis
     Route: 058
     Dates: start: 20240326

REACTIONS (6)
  - Cerebrovascular accident [Recovering/Resolving]
  - Gallbladder disorder [Recovered/Resolved]
  - Blood cholesterol increased [Recovering/Resolving]
  - Blood pressure increased [Recovering/Resolving]
  - Blood potassium decreased [Unknown]
  - Psoriasis [Unknown]

NARRATIVE: CASE EVENT DATE: 20240101
